FAERS Safety Report 14749599 (Version 1)
Quarter: 2018Q2

REPORT INFORMATION
  Report Type: Spontaneous
  Country: ES (occurrence: ES)
  Receive Date: 20180411
  Receipt Date: 20180411
  Transmission Date: 20180711
  Serious: Yes (Hospitalization, Other)
  Sender: FDA-Public Use
  Company Number: ES-SHIRE-ES201812766

PATIENT

DRUGS (8)
  1. ONCASPAR [Suspect]
     Active Substance: PEGASPARGASE
     Indication: B-CELL TYPE ACUTE LEUKAEMIA
     Dosage: 1130 IU, 1X/DAY:QD
     Route: 030
     Dates: start: 20171218, end: 20180101
  2. VINCRISTINA SULFATO [Interacting]
     Active Substance: VINCRISTINE SULFATE
     Indication: B-CELL TYPE ACUTE LEUKAEMIA
     Dosage: 1.7 MG, UNK
     Route: 042
     Dates: start: 20171214, end: 20180104
  3. METHOTREXATE (METHOTREXATE SODIUM) [Interacting]
     Active Substance: METHOTREXATE SODIUM
     Indication: B-CELL TYPE ACUTE LEUKAEMIA
     Dosage: 12 MG, UNK
     Route: 037
     Dates: start: 20171207, end: 20180108
  4. CITARABINA [Interacting]
     Active Substance: CYTARABINE
     Indication: B-CELL TYPE ACUTE LEUKAEMIA
     Dosage: 83 MG, UNK
     Route: 037
     Dates: start: 20171217, end: 20180127
  5. METILPREDNISOLONA [Interacting]
     Active Substance: METHYLPREDNISOLONE
     Indication: B-CELL TYPE ACUTE LEUKAEMIA
     Dosage: 23 MG, UNK
     Route: 042
     Dates: start: 20171207, end: 20180110
  6. HIDROCORTISONA [Concomitant]
     Active Substance: HYDROCORTISONE
     Indication: B-CELL TYPE ACUTE LEUKAEMIA
     Route: 037
     Dates: start: 20171207, end: 20180108
  7. FLEBOGAMMA [Interacting]
     Active Substance: HUMAN IMMUNOGLOBULIN G
     Indication: MEDICATION ERROR
     Dosage: IN TOTAL
     Route: 042
     Dates: start: 20171228, end: 20171228
  8. DAUNORUBICIN HYDROCHLORIDE. [Concomitant]
     Active Substance: DAUNORUBICIN HYDROCHLORIDE
     Indication: B-CELL TYPE ACUTE LEUKAEMIA
     Dosage: 34 MG, UNK
     Route: 042
     Dates: start: 20171214

REACTIONS (1)
  - Cerebral venous thrombosis [Recovered/Resolved]

NARRATIVE: CASE EVENT DATE: 20171228
